FAERS Safety Report 20998580 (Version 2)
Quarter: 2022Q3

REPORT INFORMATION
  Report Type: Other
  Country: US (occurrence: US)
  Receive Date: 20220623
  Receipt Date: 20220706
  Transmission Date: 20221027
  Serious: Yes (Hospitalization, Other)
  Sender: FDA-Public Use
  Company Number: US-Covis Pharma GmbH-2022COV01853

PATIENT
  Age: 30 Year
  Sex: Female

DRUGS (4)
  1. MAKENA [Suspect]
     Active Substance: HYDROXYPROGESTERONE CAPROATE
     Indication: Premature delivery
     Route: 058
     Dates: start: 20220131, end: 20220531
  2. CELEXA [Concomitant]
     Active Substance: CITALOPRAM HYDROBROMIDE
     Indication: Depression
  3. CELEXA [Concomitant]
     Active Substance: CITALOPRAM HYDROBROMIDE
     Indication: Anxiety
  4. PNV [Concomitant]
     Indication: Pregnancy
     Dates: start: 20211124

REACTIONS (7)
  - Spontaneous rupture of membranes [Recovered/Resolved]
  - Induced labour [Recovered/Resolved]
  - Premature delivery [Recovered/Resolved]
  - Bacterial vaginosis [Recovered/Resolved]
  - Vitamin D deficiency [Not Recovered/Not Resolved]
  - Fungal infection [Unknown]
  - Genital herpes [Not Recovered/Not Resolved]

NARRATIVE: CASE EVENT DATE: 20220101
